FAERS Safety Report 21810347 (Version 4)
Quarter: 2023Q1

REPORT INFORMATION
  Report Type: Spontaneous
  Country: CZ (occurrence: CZ)
  Receive Date: 20230103
  Receipt Date: 20230131
  Transmission Date: 20230418
  Serious: Yes (Other)
  Sender: FDA-Public Use
  Company Number: CZ-LESVI-2022005375

PATIENT
  Age: 41 Year
  Sex: Female

DRUGS (4)
  1. ESCITALOPRAM [Suspect]
     Active Substance: ESCITALOPRAM OXALATE
     Indication: Major depression
     Dosage: 10 MILLIGRAM, QD
     Route: 065
     Dates: start: 202007, end: 202105
  2. ESCITALOPRAM [Suspect]
     Active Substance: ESCITALOPRAM OXALATE
     Indication: Depression
     Dosage: 15 MG DAILY
     Route: 065
     Dates: start: 202009, end: 202105
  3. ESCITALOPRAM [Suspect]
     Active Substance: ESCITALOPRAM OXALATE
     Indication: Emotional disorder
     Dosage: 10 MILLIGRAM, QD, 10 MG, QD
     Route: 065
     Dates: start: 2020, end: 202009
  4. RISPERIDONE [Suspect]
     Active Substance: RISPERIDONE
     Indication: Major depression
     Dosage: 2 MG DAILY
     Route: 065
     Dates: start: 202007, end: 202105

REACTIONS (10)
  - Hyperprolactinaemia [Recovering/Resolving]
  - Amenorrhoea [Recovered/Resolved]
  - Apathy [Recovering/Resolving]
  - Non-consummation [Recovered/Resolved]
  - Anhedonia [Recovering/Resolving]
  - Hypercholesterolaemia [Recovering/Resolving]
  - Loss of libido [Recovered/Resolved]
  - Drug ineffective [Unknown]
  - Product use in unapproved indication [Unknown]
  - Therapeutic product effect incomplete [Unknown]

NARRATIVE: CASE EVENT DATE: 20200701
